FAERS Safety Report 15555562 (Version 1)
Quarter: 2018Q4

REPORT INFORMATION
  Report Type: Spontaneous
  Country: FR (occurrence: FR)
  Receive Date: 20181026
  Receipt Date: 20181026
  Transmission Date: 20190205
  Serious: Yes (Other)
  Sender: FDA-Public Use
  Company Number: FR-BRISTOL-MYERS SQUIBB COMPANY-BMS-2018-098736

PATIENT
  Age: 7 Year
  Sex: Female

DRUGS (1)
  1. NIVOLUMAB [Suspect]
     Active Substance: NIVOLUMAB
     Indication: SARCOMATOID CARCINOMA
     Dosage: 3 MG/KG, Q2WK
     Route: 065
     Dates: start: 201512

REACTIONS (3)
  - Product administered to patient of inappropriate age [Unknown]
  - Squamous cell carcinoma [Unknown]
  - Product use in unapproved indication [Unknown]
